FAERS Safety Report 17989563 (Version 1)
Quarter: 2020Q3

REPORT INFORMATION
  Report Type: Spontaneous
  Country: FR (occurrence: FR)
  Receive Date: 20200707
  Receipt Date: 20200707
  Transmission Date: 20201103
  Serious: Yes (Life-Threatening)
  Sender: FDA-Public Use
  Company Number: FR-009507513-2007FRA000322

PATIENT
  Age: 96 Year
  Sex: Female
  Weight: 69 kg

DRUGS (9)
  1. REPAGLINIDE. [Concomitant]
     Active Substance: REPAGLINIDE
     Indication: TYPE 2 DIABETES MELLITUS
     Route: 048
     Dates: end: 20200531
  2. LOSARTAN POTASSIUM. [Concomitant]
     Active Substance: LOSARTAN POTASSIUM
     Indication: HYPERTENSION
     Route: 048
     Dates: end: 20200531
  3. ASPEGIC [Concomitant]
     Indication: CARDIOVASCULAR EVENT PROPHYLAXIS
     Route: 048
  4. LERCANIDIPINE HYDROCHLORIDE [Concomitant]
     Active Substance: LERCANIDIPINE HYDROCHLORIDE
     Indication: HYPERTENSION
     Route: 048
     Dates: end: 20200531
  5. FUROSEMIDE. [Concomitant]
     Active Substance: FUROSEMIDE
     Indication: HYPERTENSION
     Route: 048
     Dates: end: 20200531
  6. PROCORALAN [Concomitant]
     Active Substance: IVABRADINE
     Indication: HYPERTENSION
     Route: 048
     Dates: end: 20200531
  7. JANUMET [Suspect]
     Active Substance: METFORMIN HYDROCHLORIDE\SITAGLIPTIN PHOSPHATE
     Indication: TYPE 2 DIABETES MELLITUS
     Dosage: 50MG/1000MG
     Route: 048
     Dates: end: 20200531
  8. BACTRIM [Concomitant]
     Active Substance: SULFAMETHOXAZOLE\TRIMETHOPRIM
     Indication: URINARY TRACT INFECTION
     Route: 048
     Dates: start: 20200525, end: 20200531
  9. FLUDEX [Concomitant]
     Indication: HYPERTENSION
     Dosage: PROLONGED RELEASE FILM COATED TABLET
     Route: 048
     Dates: end: 20200531

REACTIONS (2)
  - Contraindicated product prescribed [Recovered/Resolved]
  - Lactic acidosis [Recovered/Resolved]

NARRATIVE: CASE EVENT DATE: 20200531
